FAERS Safety Report 7732629-7 (Version None)
Quarter: 2011Q3

REPORT INFORMATION
  Report Type: 
  Country: None (occurrence: None)
  Receive Date: 20110906
  Receipt Date: 20110826
  Transmission Date: 20111222
  Serious: Yes (Other)
  Sender: FDA-Public Use
  Company Number: US-BAYER-2011-012030

PATIENT
  Age: 32 Year
  Sex: Female
  Weight: 58.957 kg

DRUGS (4)
  1. DROSPIRENONE AND ETHINYL ESTRADIOL [Suspect]
     Dosage: UNK
     Dates: start: 20040101, end: 20090101
  2. YASMIN [Suspect]
     Dosage: UNK
     Dates: start: 20040101, end: 20090101
  3. YASMIN [Suspect]
     Dosage: UNK
     Dates: start: 20070501, end: 20071001
  4. YASMIN [Suspect]
     Dosage: UNK
     Dates: start: 20080301, end: 20080501

REACTIONS (3)
  - GALLBLADDER DISORDER [None]
  - PAIN [None]
  - CHOLECYSTITIS CHRONIC [None]
